FAERS Safety Report 10516957 (Version 1)
Quarter: 2014Q4

REPORT INFORMATION
  Report Type: Spontaneous
  Country: US (occurrence: None)
  Receive Date: 20141003
  Receipt Date: 20141003
  Transmission Date: 20150528
  Serious: Yes (Hospitalization)
  Sender: FDA-Public Use
  Company Number: 1284240

PATIENT
  Age: 55 Year
  Sex: Female

DRUGS (3)
  1. PEGASYS [Suspect]
     Active Substance: PEGINTERFERON ALFA-2A
     Indication: CHRONIC HEPATITIS C
  2. RIBAVIRIN(RIBAVIRIN) [Suspect]
     Active Substance: RIBAVIRIN
     Indication: CHRONIC HEPATITIS C
  3. INCIVEK [Suspect]
     Active Substance: TELAPREVIR
     Indication: CHRONIC HEPATITIS C

REACTIONS (18)
  - Hypersensitivity [None]
  - Incontinence [None]
  - Tremor [None]
  - Lymphadenopathy [None]
  - Urticaria [None]
  - Depression [None]
  - Skin exfoliation [None]
  - Hypophagia [None]
  - Skin disorder [None]
  - Faeces discoloured [None]
  - Anaemia [None]
  - Haemoglobin decreased [None]
  - Nausea [None]
  - Proctalgia [None]
  - Fear [None]
  - Drug dose omission [None]
  - Anxiety [None]
  - Rash [None]
